FAERS Safety Report 14670274 (Version 1)
Quarter: 2018Q1

REPORT INFORMATION
  Report Type: Spontaneous
  Country: US (occurrence: US)
  Receive Date: 20180322
  Receipt Date: 20180322
  Transmission Date: 20180509
  Serious: No
  Sender: FDA-Public Use
  Company Number: US-PERRIGO-17US025742

PATIENT
  Sex: Female
  Weight: 54.42 kg

DRUGS (2)
  1. CICLOPIROX. [Suspect]
     Active Substance: CICLOPIROX
     Indication: DRY SKIN
     Dosage: UNK, PRN
     Route: 061
     Dates: end: 201707
  2. CICLOPIROX. [Suspect]
     Active Substance: CICLOPIROX
     Indication: ACCIDENTAL EXPOSURE TO PRODUCT

REACTIONS (3)
  - Accidental exposure to product [Recovered/Resolved]
  - Eye swelling [Not Recovered/Not Resolved]
  - Application site pruritus [Recovered/Resolved]

NARRATIVE: CASE EVENT DATE: 2014
